FAERS Safety Report 4742372-4 (Version None)
Quarter: 2005Q3

REPORT INFORMATION
  Report Type: 
  Country: None (occurrence: None)
  Receive Date: 20050808
  Receipt Date: 20050214
  Transmission Date: 20060218
  Serious: Yes (Other)
  Sender: FDA-Public Use
  Company Number: 2005035139

PATIENT
  Sex: Female

DRUGS (9)
  1. DETROL [Suspect]
     Indication: HYPERTONIC BLADDER
     Dosage: ORAL
     Route: 048
     Dates: start: 20030101
  2. DETROL LA [Suspect]
     Indication: HYPERTONIC BLADDER
     Dosage: 4 MG (4 MG, 1 IN 1 D), ORAL
     Route: 048
     Dates: start: 20050212
  3. LISINOPRIL [Concomitant]
  4. THYROID TAB [Concomitant]
  5. TYLENOL PM (DIPHENHYDRAMINE, PARACETAMOL) [Concomitant]
  6. VITAMIN C (VITAMIN C) [Concomitant]
  7. VITAMIN D  (VITAMIN D) [Concomitant]
  8. CALCIUM (CALCIUM) [Concomitant]
  9. XANAX [Concomitant]

REACTIONS (1)
  - NASOPHARYNGITIS [None]
